FAERS Safety Report 7592496-1 (Version None)
Quarter: 2011Q3

REPORT INFORMATION
  Report Type: 
  Country: None (occurrence: None)
  Receive Date: 20110706
  Receipt Date: 20110621
  Transmission Date: 20111222
  Serious: Yes (Other)
  Sender: FDA-Public Use
  Company Number: US-BAYER-201019438NA

PATIENT
  Age: 31 Year
  Sex: Female
  Weight: 80.272 kg

DRUGS (10)
  1. YASMIN [Suspect]
     Dosage: UNK
     Route: 048
  2. PHENERGAN HCL [Concomitant]
  3. DROSPIRENONE AND ETHINYL ESTRADIOL [Suspect]
     Dosage: UNK
     Dates: start: 20060101, end: 20070101
  4. IBUPROFEN [Concomitant]
  5. METFORMIN HCL [Concomitant]
     Indication: POLYCYSTIC OVARIES
  6. ALBUTEROL SULFATE AUTOHALER [Concomitant]
  7. VALTREX [Concomitant]
     Indication: HERPES VIRUS INFECTION
     Route: 048
  8. YAZ [Suspect]
     Indication: OVARIAN CYST
     Dosage: UNK
     Dates: start: 20060101, end: 20070101
  9. ZOVIRAX [Concomitant]
  10. HYDROCODONE BITARTRATE [Concomitant]
     Dosage: UNK UNK, PRN
     Route: 048
     Dates: start: 20070709

REACTIONS (3)
  - CHOLECYSTITIS CHRONIC [None]
  - CHOLELITHIASIS [None]
  - GALLBLADDER DISORDER [None]
